FAERS Safety Report 4535055-7 (Version None)
Quarter: 2004Q4

REPORT INFORMATION
  Report Type: 
  Country: None (occurrence: None)
  Receive Date: 20041222
  Receipt Date: 20041021
  Transmission Date: 20050328
  Serious: Yes (Hospitalization)
  Sender: FDA-Public Use
  Company Number: DE-ROCHE-383894

PATIENT
  Age: 46 Year
  Sex: Male

DRUGS (44)
  1. MYCOPHENOLATE MOFETIL [Suspect]
     Route: 048
     Dates: start: 20041009
  2. MYCOPHENOLATE MOFETIL [Suspect]
     Route: 048
     Dates: start: 20040927, end: 20040927
  3. MYCOPHENOLATE MOFETIL [Suspect]
     Route: 048
     Dates: start: 20040928, end: 20040928
  4. MYCOPHENOLATE MOFETIL [Suspect]
     Route: 048
     Dates: start: 20040929
  5. MYCOPHENOLATE MOFETIL [Suspect]
     Route: 048
     Dates: start: 20041002, end: 20041002
  6. MYCOPHENOLATE MOFETIL [Suspect]
     Route: 048
     Dates: start: 20041003
  7. MYCOPHENOLATE MOFETIL [Suspect]
     Route: 048
     Dates: start: 20041005
  8. MYCOPHENOLATE MOFETIL [Suspect]
     Route: 048
     Dates: start: 20041007, end: 20041008
  9. MYCOPHENOLATE MOFETIL [Suspect]
     Route: 048
     Dates: start: 20041009
  10. DACLIZUMAB [Suspect]
     Route: 042
     Dates: start: 20041011, end: 20041123
  11. DACLIZUMAB [Suspect]
     Route: 042
     Dates: start: 20040927, end: 20040927
  12. SIROLIMUS [Suspect]
     Dosage: DOSAGE ALTERED AS PER TROUGH LEVELS.
     Route: 048
     Dates: start: 20040930
  13. SIROLIMUS [Suspect]
     Route: 048
     Dates: start: 20040927, end: 20040927
  14. SIROLIMUS [Suspect]
     Route: 048
     Dates: start: 20040928, end: 20040929
  15. SIROLIMUS [Suspect]
     Route: 048
     Dates: start: 20040930, end: 20041026
  16. SIROLIMUS [Suspect]
     Route: 048
     Dates: start: 20041027, end: 20041112
  17. SIROLIMUS [Suspect]
     Route: 048
     Dates: start: 20041113
  18. PREDNISOLONE [Suspect]
     Route: 042
     Dates: start: 20041008
  19. PREDNISOLONE [Suspect]
     Route: 042
     Dates: start: 20040927, end: 20040927
  20. PREDNISOLONE [Suspect]
     Route: 042
     Dates: start: 20040928
  21. PREDNISOLONE [Suspect]
     Route: 042
     Dates: start: 20040930, end: 20041002
  22. PREDNISOLONE [Suspect]
     Route: 042
     Dates: start: 20041003
  23. PREDNISOLONE [Suspect]
     Route: 042
     Dates: start: 20041006, end: 20041006
  24. PREDNISOLONE [Suspect]
     Route: 042
     Dates: start: 20041007, end: 20041007
  25. PREDNISOLONE [Suspect]
     Route: 042
     Dates: start: 20041015, end: 20041016
  26. PREDNISOLONE [Suspect]
     Route: 042
     Dates: start: 20041017, end: 20041020
  27. PREDNISOLONE [Suspect]
     Route: 042
     Dates: start: 20041021, end: 20041102
  28. PREDNISOLONE [Suspect]
     Route: 042
     Dates: start: 20041103, end: 20041112
  29. PREDNISOLONE [Suspect]
     Route: 042
     Dates: start: 20041113, end: 20041206
  30. PREDNISOLONE [Suspect]
     Route: 042
     Dates: start: 20041207
  31. ACETYLCYSTEINE [Concomitant]
     Dates: start: 20041001, end: 20041016
  32. AMLODIPIN [Concomitant]
     Dates: start: 20040930
  33. AMPHOTERICIN B [Concomitant]
     Dates: start: 20040928
  34. CLONIDIN [Concomitant]
     Dates: start: 20041006
  35. DIHYDRALAZIN [Concomitant]
     Dates: start: 20040930
  36. FUROSEMIDE [Concomitant]
     Dosage: STOPPED ON 02 OCTOBER 2004 AND RESTARTED ON 03 OCTOBER 2004.
     Dates: start: 20040901
  37. LEVOFLOXACIN [Concomitant]
     Dates: start: 20041001, end: 20041016
  38. LORAZEPAM [Concomitant]
     Dates: start: 20040930, end: 20040930
  39. RAMIPRIL [Concomitant]
     Dates: start: 20041003
  40. URAPIDIL [Concomitant]
     Dates: start: 20040928
  41. AMIODARONE HCL [Concomitant]
     Dates: start: 20040930, end: 20041006
  42. ATORVASTATIN [Concomitant]
     Dates: start: 20041113
  43. METOPROLOL TARTRATE [Concomitant]
     Dates: start: 20040928
  44. CEFUROXIM [Concomitant]
     Dates: start: 20040928, end: 20041002

REACTIONS (4)
  - BLOOD CREATININE INCREASED [None]
  - DEHYDRATION [None]
  - LYMPHOCELE [None]
  - POST PROCEDURAL COMPLICATION [None]
